FAERS Safety Report 21286318 (Version 3)
Quarter: 2022Q3

REPORT INFORMATION
  Report Type: Spontaneous
  Country: CA (occurrence: CA)
  Receive Date: 20220902
  Receipt Date: 20220930
  Transmission Date: 20221027
  Serious: Yes (Hospitalization, Other)
  Sender: FDA-Public Use
  Company Number: CA-PFIZER INC-202201108702

PATIENT
  Age: 38 Year
  Sex: Male

DRUGS (3)
  1. XELJANZ [Suspect]
     Active Substance: TOFACITINIB CITRATE
     Indication: Colitis ulcerative
     Dosage: 10 MG, 2X/DAY
     Route: 048
     Dates: start: 202206, end: 20220919
  2. CORTISONE [Concomitant]
     Active Substance: CORTISONE
     Dosage: UNK
  3. INFLECTRA [Concomitant]
     Active Substance: INFLIXIMAB-DYYB
     Indication: Colitis ulcerative
     Dosage: 800 MG Q 0, 2, 6 WEEKS, STARTED IN HOSPITAL
     Route: 042
     Dates: start: 20220914

REACTIONS (7)
  - Haematochezia [Not Recovered/Not Resolved]
  - Colitis ulcerative [Not Recovered/Not Resolved]
  - Cellulitis [Unknown]
  - Frequent bowel movements [Not Recovered/Not Resolved]
  - Weight decreased [Unknown]
  - Infection [Recovered/Resolved]
  - Superficial vein thrombosis [Unknown]

NARRATIVE: CASE EVENT DATE: 20220801
